FAERS Safety Report 13268727 (Version 1)
Quarter: 2017Q1

REPORT INFORMATION
  Report Type: Spontaneous
  Country: FR (occurrence: FR)
  Receive Date: 20170224
  Receipt Date: 20170224
  Transmission Date: 20170428
  Serious: Yes (Hospitalization)
  Sender: FDA-Public Use
  Company Number: FR-JNJFOC-20170219728

PATIENT
  Age: 76 Year
  Sex: Female

DRUGS (5)
  1. UMULINE [Concomitant]
     Active Substance: INSULIN HUMAN
     Route: 065
  2. CEFTRIAXONE. [Concomitant]
     Active Substance: CEFTRIAXONE
     Route: 065
  3. XARELTO [Suspect]
     Active Substance: RIVAROXABAN
     Indication: PULMONARY EMBOLISM
     Route: 048
     Dates: end: 20161114
  4. CINACALCET HYDROCHLORIDE [Concomitant]
     Active Substance: CINACALCET HYDROCHLORIDE
     Route: 065
  5. LERCAN [Concomitant]
     Active Substance: LERCANIDIPINE
     Route: 065

REACTIONS (3)
  - Acute pulmonary oedema [Recovered/Resolved]
  - Pulmonary embolism [Recovered/Resolved]
  - Drug ineffective [Recovered/Resolved]

NARRATIVE: CASE EVENT DATE: 20161114
